FAERS Safety Report 10986507 (Version 1)
Quarter: 2015Q2

REPORT INFORMATION
  Report Type: Spontaneous
  Country: US (occurrence: None)
  Receive Date: 20150403
  Receipt Date: 20150403
  Transmission Date: 20150821
  Serious: No
  Sender: FDA-Public Use
  Company Number: None

PATIENT
  Age: 49 Year
  Sex: Female
  Weight: 72.58 kg

DRUGS (15)
  1. ADDERALL [Concomitant]
     Active Substance: AMPHETAMINE ASPARTATE\AMPHETAMINE SULFATE\DEXTROAMPHETAMINE SACCHARATE\DEXTROAMPHETAMINE SULFATE
  2. CYMBALTA [Suspect]
     Active Substance: DULOXETINE HYDROCHLORIDE
     Indication: MYALGIA
     Dosage: 1 PILL, INCREASE TO 2 IF NEEDED
     Route: 048
     Dates: start: 20150203, end: 20150212
  3. CYMBALTA [Suspect]
     Active Substance: DULOXETINE HYDROCHLORIDE
     Indication: SYSTEMIC LUPUS ERYTHEMATOSUS
     Dosage: 1 PILL, INCREASE TO 2 IF NEEDED
     Route: 048
     Dates: start: 20150203, end: 20150212
  4. POTASSIUM CITRATE. [Concomitant]
     Active Substance: POTASSIUM CITRATE
  5. MELOXICAM. [Concomitant]
     Active Substance: MELOXICAM
  6. FISH OIL [Concomitant]
     Active Substance: FISH OIL
  7. CALCIUM WITH VITAMIN D [Concomitant]
     Active Substance: CALCIUM\VITAMIN D
  8. CHROMIUM PICOLINATE [Concomitant]
     Active Substance: CHROMIUM PICOLINATE
  9. CYMBALTA [Suspect]
     Active Substance: DULOXETINE HYDROCHLORIDE
     Indication: FIBROMYALGIA
     Dosage: 1 PILL, INCREASE TO 2 IF NEEDED
     Route: 048
     Dates: start: 20150203, end: 20150212
  10. LIVALO [Concomitant]
     Active Substance: PITAVASTATIN CALCIUM
  11. BLACK COHOSH ROOT [Concomitant]
  12. TOLTERODONE [Concomitant]
  13. HYDROCODONE [Concomitant]
     Active Substance: HYDROCODONE
  14. VALTREX [Concomitant]
     Active Substance: VALACYCLOVIR HYDROCHLORIDE
  15. EVENING PRIMROSE OIL [Concomitant]
     Active Substance: EVENING PRIMROSE OIL

REACTIONS (2)
  - Depression [None]
  - Suicidal ideation [None]

NARRATIVE: CASE EVENT DATE: 20150212
